FAERS Safety Report 7675494-9 (Version None)
Quarter: 2011Q3

REPORT INFORMATION
  Report Type: 
  Country: None (occurrence: None)
  Receive Date: 20110810
  Receipt Date: 20110727
  Transmission Date: 20111222
  Serious: Yes (Hospitalization)
  Sender: FDA-Public Use
  Company Number: IT-CELGENEUS-083-21880-10091313

PATIENT
  Sex: Male
  Weight: 58.5 kg

DRUGS (8)
  1. REVLIMID [Suspect]
     Dosage: 5 MILLIGRAM
     Route: 048
     Dates: start: 20100712
  2. REVLIMID [Suspect]
     Dosage: 10 MILLIGRAM
     Route: 048
     Dates: start: 20100726, end: 20100728
  3. ARANESP [Concomitant]
     Dosage: 150 UNKNOWN
     Route: 065
     Dates: end: 20100909
  4. SELEPARINA [Concomitant]
     Dosage: 3800 IU/ 0.4ML
     Route: 065
     Dates: end: 20100730
  5. REVLIMID [Suspect]
     Dosage: 2.5 MILLIGRAM
     Route: 048
     Dates: start: 20100826, end: 20100910
  6. GANCICLOVIR [Concomitant]
     Indication: CYTOMEGALOVIRUS INFECTION
     Route: 065
     Dates: start: 20101011, end: 20101029
  7. ALLOPURINOL [Concomitant]
     Dosage: 300 MILLIGRAM
     Route: 065
  8. BACTRIM [Concomitant]
     Dosage: 1000 MILLIGRAM
     Route: 065

REACTIONS (2)
  - GENERAL PHYSICAL HEALTH DETERIORATION [None]
  - RENAL FAILURE [None]
